FAERS Safety Report 9322254 (Version 1)
Quarter: 2013Q2

REPORT INFORMATION
  Report Type: Spontaneous
  Country: CA (occurrence: CA)
  Receive Date: 20130531
  Receipt Date: 20130531
  Transmission Date: 20140414
  Serious: Yes (Other)
  Sender: FDA-Public Use
  Company Number: CA-AMGEN-CANSP2013037922

PATIENT
  Sex: 0

DRUGS (1)
  1. PROLIA [Suspect]
     Indication: OSTEOPOROSIS

REACTIONS (1)
  - Atypical fracture [Unknown]
